FAERS Safety Report 25694142 (Version 3)
Quarter: 2025Q4

REPORT INFORMATION
  Report Type: Spontaneous
  Country: US (occurrence: US)
  Receive Date: 20250818
  Receipt Date: 20251001
  Transmission Date: 20260117
  Serious: Yes (Other)
  Sender: UCB
  Company Number: US-UCBSA-2025050467

PATIENT
  Sex: Male
  Weight: 77.1 kg

DRUGS (1)
  1. KEPPRA XR [Suspect]
     Active Substance: LEVETIRACETAM
     Indication: Generalised tonic-clonic seizure
     Dosage: 1000 MILLIGRAM, ONCE DAILY (QD), AT NIGHT
     Route: 048
     Dates: start: 20250701, end: 20250716

REACTIONS (5)
  - Seizure [Recovered/Resolved]
  - Bronchitis [Recovered/Resolved]
  - Skin burning sensation [Recovered/Resolved]
  - Insomnia [Unknown]
  - Dehydration [Unknown]

NARRATIVE: CASE EVENT DATE: 20250101
